FAERS Safety Report 5166650-2 (Version None)
Quarter: 2006Q4

REPORT INFORMATION
  Report Type: 
  Country: None (occurrence: None)
  Receive Date: 20061129
  Receipt Date: 20061129
  Transmission Date: 20070319
  Serious: Yes (Other)
  Sender: FDA-Public Use
  Company Number: None

PATIENT
  Age: 83 Year
  Sex: Female

DRUGS (11)
  1. AMLODIPINE [Suspect]
     Dates: start: 20030729, end: 20050301
  2. VIOXX [Concomitant]
  3. IBUPROFEN [Concomitant]
  4. CELEBREX [Concomitant]
  5. ALBUTEROL [Concomitant]
  6. ADVAIR HFA [Concomitant]
  7. SYNTHROID [Concomitant]
  8. HYDROCHLOROTHIAZIDE [Concomitant]
  9. VITAMIN E [Concomitant]
  10. CITRUCEL [Concomitant]
  11. LIPITOR [Concomitant]

REACTIONS (10)
  - BLOOD BILIRUBIN INCREASED [None]
  - CHROMATURIA [None]
  - FAECES PALE [None]
  - FATIGUE [None]
  - HEPATIC TRAUMA [None]
  - JAUNDICE [None]
  - MASS [None]
  - OCULAR ICTERUS [None]
  - PANCREATITIS CHRONIC [None]
  - WEIGHT DECREASED [None]
